FAERS Safety Report 9017999 (Version 1)
Quarter: 2013Q1

REPORT INFORMATION
  Report Type: Spontaneous
  Country: GR (occurrence: GR)
  Receive Date: 20130118
  Receipt Date: 20130118
  Transmission Date: 20140127
  Serious: Yes (Hospitalization)
  Sender: FDA-Public Use
  Company Number: GR-009507513-1301GRC007100

PATIENT
  Age: 25 Year
  Sex: Female

DRUGS (2)
  1. ASMANEX TWISTHALER [Suspect]
     Indication: COUGH
     Dosage: 200 MG, BID
     Dates: start: 20130109, end: 20130109
  2. XOZAL [Concomitant]
     Indication: COUGH
     Dosage: 1 TABLET EVERY NIGHT
     Dates: start: 20130109

REACTIONS (3)
  - Oedema mucosal [Recovered/Resolved]
  - Dermatitis allergic [Recovered/Resolved]
  - Off label use [Unknown]
